FAERS Safety Report 7297906-5 (Version None)
Quarter: 2011Q1

REPORT INFORMATION
  Report Type: 
  Country: None (occurrence: None)
  Receive Date: 20110217
  Receipt Date: 20110106
  Transmission Date: 20110831
  Serious: No
  Sender: FDA-Public Use
  Company Number: US-KINGPHARMUSA00001-K201100042

PATIENT
  Age: 16 Year
  Sex: Female
  Weight: 43.084 kg

DRUGS (1)
  1. FLECTOR [Suspect]
     Indication: ARTHRALGIA
     Dosage: 1 PATCH, SINGLE
     Route: 061
     Dates: start: 20110106, end: 20110101

REACTIONS (2)
  - DRUG INEFFECTIVE [None]
  - APPLICATION SITE PAIN [None]
